FAERS Safety Report 15852549 (Version 2)
Quarter: 2019Q1

REPORT INFORMATION
  Report Type: Spontaneous
  Country: KR (occurrence: KR)
  Receive Date: 20190122
  Receipt Date: 20190131
  Transmission Date: 20190417
  Serious: Yes (Other)
  Sender: FDA-Public Use
  Company Number: KR-SA-2019SA014708

PATIENT
  Age: 34 Year
  Sex: Male
  Weight: 79 kg

DRUGS (9)
  1. ROPIVACAINE. [Suspect]
     Active Substance: ROPIVACAINE HYDROCHLORIDE
     Indication: NERVE BLOCK
  2. NORMAL SALINE [Concomitant]
     Active Substance: SODIUM CHLORIDE
     Indication: LOCAL ANAESTHESIA
  3. EPINEPHRINE. [Suspect]
     Active Substance: EPINEPHRINE
     Indication: LOCAL ANAESTHESIA
     Dosage: 20 ML 2% LIDOCAINE, 20 ML 0.75% ROPIVACAINE, AND 20 ML NORMAL SALINE WITH 1: 200,000 EPINEPHRINE
  4. EPINEPHRINE. [Suspect]
     Active Substance: EPINEPHRINE
     Indication: NERVE BLOCK
  5. LIDOCAINE. [Suspect]
     Active Substance: LIDOCAINE
     Indication: LOCAL ANAESTHESIA
     Dosage: 20 ML
  6. ROPIVACAINE. [Suspect]
     Active Substance: ROPIVACAINE HYDROCHLORIDE
     Indication: LOCAL ANAESTHESIA
     Dosage: 20 ML 2% LIDOCAINE, 20 ML 0.75% ROPIVACAINE, AND 20 ML NORMAL SALINE WITH 1: 200,000 EPINEPHRINE
  7. FENTANYL. [Concomitant]
     Active Substance: FENTANYL
     Dosage: 50 UG
     Route: 042
  8. NORMAL SALINE [Concomitant]
     Active Substance: SODIUM CHLORIDE
     Indication: NERVE BLOCK
     Dosage: 20 ML 2% LIDOCAINE, 20 ML 0.75% ROPIVACAINE, AND 20 ML NORMAL SALINE WITH 1: 200,000 EPINEPHRINE
  9. LIDOCAINE. [Suspect]
     Active Substance: LIDOCAINE
     Indication: NERVE BLOCK

REACTIONS (10)
  - Seizure [Recovered/Resolved]
  - Cerebral haemorrhage [Recovered/Resolved]
  - Somnolence [Recovered/Resolved]
  - Pupils unequal [Recovered/Resolved]
  - Product administration error [Unknown]
  - Stupor [Recovered/Resolved]
  - Tremor [Recovered/Resolved]
  - Accidental exposure to product [Unknown]
  - Pupillary reflex impaired [Recovered/Resolved]
  - Heart rate increased [Recovered/Resolved]
